FAERS Safety Report 4373291-3 (Version None)
Quarter: 2004Q2

REPORT INFORMATION
  Report Type: 
  Country: None (occurrence: None)
  Receive Date: 20040603
  Receipt Date: 20040520
  Transmission Date: 20050107
  Serious: Yes (Other)
  Sender: FDA-Public Use
  Company Number: T04-USA-02082-01

PATIENT
  Age: 60 Year
  Sex: Female
  Weight: 74.8435 kg

DRUGS (6)
  1. ESCITALOPRAM (OPEN LABEL) (ESCITALOPRAM) [Suspect]
     Indication: DEPRESSION
     Dosage: 2.5 MG QD; PO
     Route: 048
     Dates: start: 20040420, end: 20040510
  2. ESCITALOPRAM (OPEN LABEL) (ESCITALOPRAM) [Suspect]
     Indication: DEPRESSION
     Dosage: 5 MG QD; PO
     Route: 048
     Dates: start: 20040511, end: 20040517
  3. ESCITALOPRAM (OPEN LABEL) (ESCITALOPRAM) [Suspect]
     Indication: DEPRESSION
     Dosage: 10 MG QD; PO
     Route: 048
     Dates: start: 20040518
  4. TRIAMTERENE [Concomitant]
  5. ATENOLOL [Concomitant]
  6. CENESTIN (ESTROGENS CONJUGATED) [Concomitant]

REACTIONS (2)
  - AKATHISIA [None]
  - RESTLESSNESS [None]
